FAERS Safety Report 24916741 (Version 2)
Quarter: 2025Q2

REPORT INFORMATION
  Report Type: Spontaneous
  Country: BR (occurrence: BR)
  Receive Date: 20250203
  Receipt Date: 20250404
  Transmission Date: 20250717
  Serious: Yes (Other)
  Sender: NOVARTIS
  Company Number: BR-002147023-NVSC2025BR012450

PATIENT
  Age: 45 Year
  Sex: Male

DRUGS (3)
  1. XOLAIR [Suspect]
     Active Substance: OMALIZUMAB
     Indication: Product used for unknown indication
     Dosage: 150 MG, Q4W (INJECTABLE SOLUTION 1 FILLED SYRINGE CONTAINED IN TRANSPARENT GLASS X 1 M) (TWO DOSES)
     Route: 065
     Dates: start: 2023
  2. XOLAIR [Suspect]
     Active Substance: OMALIZUMAB
     Route: 065
  3. CYCLOSPORINE [Suspect]
     Active Substance: CYCLOSPORINE
     Indication: Product used for unknown indication
     Dosage: 100 MG QD (SOFT GELATIN CAPSULE CONTAINED IN ALUMINIUM BLISTER X 50)
     Route: 065

REACTIONS (12)
  - Syncope [Recovering/Resolving]
  - Hypertension [Recovering/Resolving]
  - Photopsia [Recovering/Resolving]
  - Eye pain [Recovering/Resolving]
  - Urticaria chronic [Not Recovered/Not Resolved]
  - Urticaria [Not Recovered/Not Resolved]
  - Anxiety [Unknown]
  - Depression [Unknown]
  - Malaise [Not Recovered/Not Resolved]
  - Dermatitis atopic [Not Recovered/Not Resolved]
  - Product supply issue [Not Recovered/Not Resolved]
  - Product dose omission issue [Not Recovered/Not Resolved]

NARRATIVE: CASE EVENT DATE: 20250101
